FAERS Safety Report 11409184 (Version 1)
Quarter: 2015Q3

REPORT INFORMATION
  Report Type: Spontaneous
  Country: JP (occurrence: JP)
  Receive Date: 20150824
  Receipt Date: 20150824
  Transmission Date: 20151125
  Serious: Yes (Disabling, Other)
  Sender: FDA-Public Use
  Company Number: JP-ROCHE-1621767

PATIENT
  Age: 54 Year
  Sex: Male

DRUGS (1)
  1. AVASTIN [Suspect]
     Active Substance: BEVACIZUMAB
     Indication: MACULAR DEGENERATION
     Dosage: DOSAGE IS UNCERTAIN.
     Route: 031

REACTIONS (3)
  - Off label use [Unknown]
  - Cataract [Recovered/Resolved]
  - Posterior capsule rupture [Unknown]

NARRATIVE: CASE EVENT DATE: 20080514
